FAERS Safety Report 6756422-7 (Version None)
Quarter: 2010Q2

REPORT INFORMATION
  Report Type: 
  Country: None (occurrence: None)
  Receive Date: 20100604
  Receipt Date: 20100527
  Transmission Date: 20101027
  Serious: Yes (Other)
  Sender: FDA-Public Use
  Company Number: A0801634A

PATIENT
  Age: 72 Year
  Sex: Female

DRUGS (7)
  1. DEXEDRINE [Suspect]
     Indication: NARCOLEPSY
     Dosage: 3TAB AS REQUIRED
     Route: 048
     Dates: start: 19840101
  2. TOPROL-XL [Concomitant]
  3. DIOVAN [Concomitant]
  4. GLUCOPHAGE [Concomitant]
  5. COMPAZINE [Concomitant]
  6. ESTROGEN PATCH [Concomitant]
  7. VITAMIN B-12 [Concomitant]

REACTIONS (15)
  - BLOOD PRESSURE INCREASED [None]
  - CONVULSION [None]
  - DRY MOUTH [None]
  - EAR PAIN [None]
  - FEELING ABNORMAL [None]
  - HEADACHE [None]
  - IRRITABILITY [None]
  - MEDICATION ERROR [None]
  - MENTAL IMPAIRMENT [None]
  - NARCOLEPSY [None]
  - OROPHARYNGEAL PAIN [None]
  - PRODUCT QUALITY ISSUE [None]
  - PSYCHOMOTOR HYPERACTIVITY [None]
  - RHINORRHOEA [None]
  - SNEEZING [None]
